FAERS Safety Report 6518048-X (Version None)
Quarter: 2009Q4

REPORT INFORMATION
  Report Type: 
  Country: None (occurrence: None)
  Receive Date: 20091224
  Receipt Date: 20091215
  Transmission Date: 20100525
  Serious: Yes (Other)
  Sender: FDA-Public Use
  Company Number: US-JNJFOC-20061005969

PATIENT
  Sex: Male

DRUGS (3)
  1. RISPERDAL [Suspect]
     Indication: HALLUCINATION
     Route: 048
  2. RISPERDAL [Suspect]
     Indication: DEPRESSION
     Route: 048
  3. RISPERDAL [Suspect]
     Indication: SCHIZOPHRENIA
     Route: 048

REACTIONS (4)
  - DIABETES MELLITUS [None]
  - HYPERGLYCAEMIA [None]
  - TARDIVE DYSKINESIA [None]
  - WEIGHT INCREASED [None]
